FAERS Safety Report 18191238 (Version 1)
Quarter: 2020Q3

REPORT INFORMATION
  Report Type: Spontaneous
  Country: DE (occurrence: DE)
  Receive Date: 20200825
  Receipt Date: 20200825
  Transmission Date: 20201103
  Serious: Yes (Hospitalization)
  Sender: FDA-Public Use
  Company Number: DE-TEVA-2020-DE-1817113

PATIENT
  Age: 90 Year
  Sex: Female

DRUGS (7)
  1. SPIRONOLACTONE. [Suspect]
     Active Substance: SPIRONOLACTONE
     Dosage: 50 MILLIGRAM DAILY; 1?0?0?0
  2. SIMVASTATIN. [Concomitant]
     Active Substance: SIMVASTATIN
     Dosage: 40 MILLIGRAM DAILY; 0?0?1?0
  3. RAMIPRIL. [Suspect]
     Active Substance: RAMIPRIL
     Dosage: .5 DOSAGE FORMS DAILY; 2.5 MG, 0?0?0.5?0
  4. TORASEMIDE [Suspect]
     Active Substance: TORSEMIDE
     Dosage: 20 MILLIGRAM DAILY; 1?1?0?0
  5. VIGANTOL 1000I.E. VITAMIN D3 [Concomitant]
     Dosage: 1000 IU (INTERNATIONAL UNIT) DAILY; 1?0?0?0
  6. PANTOPRAZOL [Concomitant]
     Active Substance: PANTOPRAZOLE SODIUM
     Dosage: 40 MILLIGRAM DAILY; 1?0?0?0
  7. PIVMELAM 400MG [Concomitant]
     Dosage: 1200 MILLIGRAM DAILY; 1?1?1?0

REACTIONS (3)
  - Acute kidney injury [Recovering/Resolving]
  - Abdominal pain [Recovering/Resolving]
  - Product prescribing error [Unknown]
